FAERS Safety Report 24090552 (Version 2)
Quarter: 2024Q3

REPORT INFORMATION
  Report Type: Spontaneous
  Country: US (occurrence: US)
  Receive Date: 20240715
  Receipt Date: 20240723
  Transmission Date: 20241016
  Serious: No
  Sender: ELI LILLY AND CO
  Company Number: US-ELI_LILLY_AND_COMPANY-US202407008418

PATIENT
  Age: 63 Year
  Sex: Female

DRUGS (1)
  1. OLUMIANT [Suspect]
     Active Substance: BARICITINIB
     Indication: Rheumatoid arthritis
     Dosage: 2 MG, UNKNOWN
     Route: 048
     Dates: start: 202406

REACTIONS (8)
  - Cataract [Unknown]
  - Oral candidiasis [Unknown]
  - Vision blurred [Unknown]
  - Malaise [Unknown]
  - Dizziness [Unknown]
  - Vulvovaginal mycotic infection [Unknown]
  - Headache [Unknown]
  - Drug ineffective [Unknown]
